FAERS Safety Report 13296365 (Version 1)
Quarter: 2017Q1

REPORT INFORMATION
  Report Type: Spontaneous
  Country: US (occurrence: US)
  Receive Date: 20170304
  Receipt Date: 20170304
  Transmission Date: 20170428
  Serious: No
  Sender: FDA-Public Use
  Company Number: US-LUNDBECK-DKLU2026644

PATIENT
  Sex: Female

DRUGS (3)
  1. NORTHERA [Suspect]
     Active Substance: DROXIDOPA
     Indication: PRODUCT USED FOR UNKNOWN INDICATION
     Dosage: 100 MG AND 300 MG TO MAKE UP 400 MG TID
     Route: 065
     Dates: start: 201612
  2. NORTHERA [Suspect]
     Active Substance: DROXIDOPA
     Dosage: 100 MG AND 300 MG TO MAKE UP 400 MG TID
     Route: 065
     Dates: start: 201612
  3. NORTHERA [Suspect]
     Active Substance: DROXIDOPA
     Route: 065

REACTIONS (1)
  - Inappropriate schedule of drug administration [Unknown]
